FAERS Safety Report 8122178-9 (Version None)
Quarter: 2012Q1

REPORT INFORMATION
  Report Type: 
  Country: None (occurrence: None)
  Receive Date: 20120208
  Receipt Date: 20120101
  Transmission Date: 20120608
  Serious: Yes (Other)
  Sender: FDA-Public Use
  Company Number: IE-ROCHE-1037601

PATIENT
  Sex: Male

DRUGS (2)
  1. MIRCERA [Suspect]
     Indication: RENAL FAILURE CHRONIC
     Route: 065
  2. MIRCERA [Suspect]

REACTIONS (1)
  - HAEMOGLOBIN DECREASED [None]
